FAERS Safety Report 9785087 (Version 1)
Quarter: 2013Q4

REPORT INFORMATION
  Report Type: Spontaneous
  Country: US (occurrence: US)
  Receive Date: 20131227
  Receipt Date: 20131227
  Transmission Date: 20140711
  Serious: No
  Sender: FDA-Public Use
  Company Number: US-009507513-1312USA007498

PATIENT
  Sex: Male

DRUGS (3)
  1. VICTRELIS [Suspect]
     Indication: HEPATITIS C
     Dosage: 4 TABLETS, THREE TIMES A DAY
     Route: 048
     Dates: start: 20131110, end: 2013
  2. PEGINTRON [Suspect]
     Dosage: UNK
  3. REBETOL [Suspect]
     Dosage: UNK
     Route: 048

REACTIONS (3)
  - Palpitations [Recovering/Resolving]
  - Tinnitus [Recovering/Resolving]
  - Dyspnoea [Recovering/Resolving]
